FAERS Safety Report 7071296-5 (Version None)
Quarter: 2010Q4

REPORT INFORMATION
  Report Type: 
  Country: None (occurrence: None)
  Receive Date: 20101028
  Receipt Date: 20101028
  Transmission Date: 20110411
  Serious: Yes (Other)
  Sender: FDA-Public Use
  Company Number: None

PATIENT
  Age: 60 Year
  Sex: Female
  Weight: 77.3 kg

DRUGS (20)
  1. NEURONTIN [Suspect]
     Indication: CARPAL TUNNEL SYNDROME
     Dosage: 300MG CAP. 1 CAP TWICE /DAY ORAL
     Route: 048
     Dates: start: 20100730, end: 20101001
  2. NEURONTIN [Suspect]
     Indication: ULNAR NERVE INJURY
     Dosage: 300MG CAP. 1 CAP TWICE /DAY ORAL
     Route: 048
     Dates: start: 20100730, end: 20101001
  3. KADIAN [Suspect]
  4. MORPHINE SULPHATE IR [Concomitant]
  5. NUVIGIL [Concomitant]
  6. CENESTIN [Concomitant]
  7. PROMETRIUM [Concomitant]
  8. DIGOXIN [Concomitant]
  9. PREVACID [Concomitant]
  10. SYNTHROID [Concomitant]
  11. EFFEXOR [Concomitant]
  12. MORPHINE [Concomitant]
  13. DIAZIDE [Concomitant]
  14. PREVACID [Concomitant]
  15. CENESTIN [Concomitant]
  16. PROMETRIUM [Concomitant]
  17. EFFEXOR [Concomitant]
  18. MIRALAX [Concomitant]
  19. DIGITEK [Concomitant]
  20. MORPHINE IN THE FORM OF KADIAN + MORPHINE SULFATE IR. [Concomitant]

REACTIONS (2)
  - OEDEMA PERIPHERAL [None]
  - PAIN IN EXTREMITY [None]
